FAERS Safety Report 21522092 (Version 3)
Quarter: 2022Q4

REPORT INFORMATION
  Report Type: Spontaneous
  Country: JP (occurrence: JP)
  Receive Date: 20221028
  Receipt Date: 20221216
  Transmission Date: 20230113
  Serious: Yes (Other)
  Sender: FDA-Public Use
  Company Number: JP-NEUROCRINE BIOSCIENCES INC.-2022NBI07697

PATIENT

DRUGS (9)
  1. VALBENAZINE [Suspect]
     Active Substance: VALBENAZINE
     Indication: Tardive dyskinesia
     Dosage: 40 MILLIGRAM, QD
     Route: 048
     Dates: start: 20220915
  2. VALBENAZINE [Suspect]
     Active Substance: VALBENAZINE
     Dosage: 80 MILLIGRAM, QD
     Route: 048
     Dates: start: 20220822, end: 20220914
  3. VALBENAZINE [Suspect]
     Active Substance: VALBENAZINE
     Dosage: 40 MILLIGRAM, QD
     Route: 048
     Dates: start: 20220606
  4. LEVOMEPROMAZINE MALEATE [Suspect]
     Active Substance: LEVOMEPROMAZINE MALEATE
     Indication: Schizophrenia
     Dosage: UNKNOWN
     Route: 065
  5. MOSAPRAMINE [Suspect]
     Active Substance: MOSAPRAMINE
     Dosage: UNKNOWN
     Route: 065
  6. BROMPERIDOL [Suspect]
     Active Substance: BROMPERIDOL
     Dosage: UNKNOWN
     Route: 065
  7. BLONANSERIN [Suspect]
     Active Substance: BLONANSERIN
     Dosage: 18 MILLIGRAM, QD
     Route: 065
  8. RISPERIDONE [Concomitant]
     Active Substance: RISPERIDONE
     Dosage: UNKNOWN
     Route: 065
  9. QUETIAPINE [Concomitant]
     Active Substance: QUETIAPINE
     Dosage: UNKNOWN
     Route: 065

REACTIONS (2)
  - Tardive dyskinesia [Recovering/Resolving]
  - Salivary hypersecretion [Recovering/Resolving]

NARRATIVE: CASE EVENT DATE: 20220912
